FAERS Safety Report 24558376 (Version 1)
Quarter: 2024Q4

REPORT INFORMATION
  Report Type: Spontaneous
  Country: US (occurrence: US)
  Receive Date: 20241029
  Receipt Date: 20241029
  Transmission Date: 20250115
  Serious: No
  Sender: ABBVIE
  Company Number: US-ABBVIE-5976623

PATIENT
  Age: 33 Year
  Sex: Male

DRUGS (2)
  1. BOTOX [Suspect]
     Active Substance: ONABOTULINUMTOXINA
     Indication: Quadriparesis
     Dosage: TIME INTERVAL: AS NECESSARY: DOSE:700 INTERNATIONAL UNT AND FREQUENCY: EVERY THREE MONTHS
     Route: 030
     Dates: start: 20230810, end: 20230810
  2. BOTOX [Suspect]
     Active Substance: ONABOTULINUMTOXINA
     Indication: Quadriparesis
     Dosage: TIME INTERVAL: AS NECESSARY: DOSE:700 INTERNATIONAL UNT AND FREQUENCY: EVERY THREE MONTHS
     Route: 030
     Dates: start: 202408, end: 202408

REACTIONS (1)
  - Dysphagia [Not Recovered/Not Resolved]

NARRATIVE: CASE EVENT DATE: 20230101
